FAERS Safety Report 8381059-6 (Version None)
Quarter: 2012Q2

REPORT INFORMATION
  Report Type: 
  Country: None (occurrence: None)
  Receive Date: 20120523
  Receipt Date: 20120521
  Transmission Date: 20120825
  Serious: Yes (Hospitalization)
  Sender: FDA-Public Use
  Company Number: FR-PFIZER INC-2012121986

PATIENT
  Age: 6 Year
  Sex: Male

DRUGS (2)
  1. ACETAMINOPHEN [Suspect]
     Indication: PYREXIA
     Dosage: 1 DF, AS NEEDED
     Route: 048
     Dates: end: 20120401
  2. PEDIATRIC ADVIL [Suspect]
     Indication: PYREXIA
     Dosage: 1 DF, AS NEEDED
     Route: 048
     Dates: end: 20120401

REACTIONS (1)
  - RHABDOMYOLYSIS [None]
